FAERS Safety Report 20053468 (Version 1)
Quarter: 2021Q4

REPORT INFORMATION
  Report Type: Spontaneous
  Country: US (occurrence: None)
  Receive Date: 20211109
  Receipt Date: 20211109
  Transmission Date: 20220303
  Serious: Yes (Other)
  Sender: FDA-Public Use
  Company Number: None

PATIENT
  Age: 46 Year
  Sex: Female
  Weight: 78.02 kg

DRUGS (1)
  1. CASIRIVIMAB\IMDEVIMAB [Suspect]
     Active Substance: CASIRIVIMAB\IMDEVIMAB
     Indication: Product used for unknown indication

REACTIONS (6)
  - Back pain [None]
  - Oxygen saturation decreased [None]
  - Cold sweat [None]
  - Abdominal pain lower [None]
  - Photopsia [None]
  - Infusion related reaction [None]

NARRATIVE: CASE EVENT DATE: 20211109
